FAERS Safety Report 15867599 (Version 1)
Quarter: 2019Q1

REPORT INFORMATION
  Report Type: Report from Study
  Country: US (occurrence: US)
  Receive Date: 20190125
  Receipt Date: 20190125
  Transmission Date: 20190417
  Serious: Yes (Hospitalization)
  Sender: FDA-Public Use
  Company Number: US-EISAI MEDICAL RESEARCH-EC-2018-047529

PATIENT
  Sex: Male
  Weight: 114 kg

DRUGS (19)
  1. LENVIMA [Suspect]
     Active Substance: LENVATINIB
     Indication: HEPATIC CANCER
     Route: 048
     Dates: start: 20181030, end: 20181105
  2. MAGNESIUM [Concomitant]
     Active Substance: MAGNESIUM
  3. ZORTRESS [Concomitant]
     Active Substance: EVEROLIMUS
  4. BACLOFEN. [Concomitant]
     Active Substance: BACLOFEN
  5. MULTIVITAMINS [Concomitant]
     Active Substance: VITAMINS
  6. GABAPENTIN. [Concomitant]
     Active Substance: GABAPENTIN
  7. VALACYCLOVIR [Concomitant]
     Active Substance: VALACYCLOVIR HYDROCHLORIDE
  8. LENVIMA [Suspect]
     Active Substance: LENVATINIB
     Route: 048
     Dates: start: 20181226, end: 20190101
  9. OXYCODONE HYDROCHLORIDE. [Concomitant]
     Active Substance: OXYCODONE HYDROCHLORIDE
  10. LENVIMA [Suspect]
     Active Substance: LENVATINIB
     Route: 048
     Dates: start: 20181106, end: 201811
  11. LENVIMA [Suspect]
     Active Substance: LENVATINIB
     Route: 048
     Dates: start: 20190102
  12. AUGMENTIN [Concomitant]
     Active Substance: AMOXICILLIN\CLAVULANATE POTASSIUM
  13. METHADONE [Concomitant]
     Active Substance: METHADONE HYDROCHLORIDE
  14. TACROLIMUS. [Concomitant]
     Active Substance: TACROLIMUS
  15. DOXYCYCLINE. [Concomitant]
     Active Substance: DOXYCYCLINE
  16. TRAZODONE HYDROCHLORIDE. [Concomitant]
     Active Substance: TRAZODONE HYDROCHLORIDE
  17. AMLODIPINE BESYLATE. [Concomitant]
     Active Substance: AMLODIPINE BESYLATE
  18. NEXAVAR [Concomitant]
     Active Substance: SORAFENIB
  19. KEFLEX [Concomitant]
     Active Substance: CEPHALEXIN

REACTIONS (5)
  - Hepatic enzyme abnormal [Unknown]
  - Fatigue [Not Recovered/Not Resolved]
  - Herpes zoster [Unknown]
  - Pyrexia [Unknown]
  - Blood pressure increased [Not Recovered/Not Resolved]

NARRATIVE: CASE EVENT DATE: 2018
